FAERS Safety Report 7479436-0 (Version None)
Quarter: 2011Q2

REPORT INFORMATION
  Report Type: 
  Country: None (occurrence: None)
  Receive Date: 20110513
  Receipt Date: 20110510
  Transmission Date: 20111010
  Serious: Yes (Other)
  Sender: FDA-Public Use
  Company Number: US-PFIZER INC-2011061833

PATIENT
  Age: 42 Year
  Sex: Female

DRUGS (1)
  1. CHANTIX [Suspect]
     Dosage: UNK
     Route: 048
     Dates: start: 20110111, end: 20110201

REACTIONS (4)
  - ACTIVITIES OF DAILY LIVING IMPAIRED [None]
  - ANGER [None]
  - CHRONIC OBSTRUCTIVE PULMONARY DISEASE [None]
  - MOOD ALTERED [None]
